FAERS Safety Report 13973593 (Version 1)
Quarter: 2017Q3

REPORT INFORMATION
  Report Type: Spontaneous
  Country: JP (occurrence: JP)
  Receive Date: 20170915
  Receipt Date: 20170915
  Transmission Date: 20171128
  Serious: Yes (Other)
  Sender: FDA-Public Use
  Company Number: JP-PFIZER INC-2017392849

PATIENT

DRUGS (1)
  1. INLYTA [Suspect]
     Active Substance: AXITINIB
     Dosage: UNK
     Dates: start: 2013

REACTIONS (3)
  - Neoplasm progression [Unknown]
  - Cardiomyopathy [Unknown]
  - Aortic dissection [Unknown]

NARRATIVE: CASE EVENT DATE: 201512
